FAERS Safety Report 17452684 (Version 1)
Quarter: 2020Q1

REPORT INFORMATION
  Report Type: Spontaneous
  Country: PH (occurrence: US)
  Receive Date: 20200224
  Receipt Date: 20200224
  Transmission Date: 20200409
  Serious: No
  Sender: FDA-Public Use
  Company Number: PH-009507513-2002USA005886

PATIENT
  Sex: Male
  Weight: 77.1 kg

DRUGS (4)
  1. PRINIVIL [Suspect]
     Active Substance: LISINOPRIL
     Indication: BLOOD PRESSURE MEASUREMENT
     Dosage: 20 MILLIGRAM
     Dates: start: 2006
  2. ZOCOR [Suspect]
     Active Substance: SIMVASTATIN
     Dosage: 20 MILLIGRAM
  3. PRINIVIL [Suspect]
     Active Substance: LISINOPRIL
     Dosage: 10 MILLIGRAM
  4. ZOCOR [Suspect]
     Active Substance: SIMVASTATIN
     Dosage: 40 MILLIGRAM

REACTIONS (5)
  - High density lipoprotein increased [Unknown]
  - Blood triglycerides increased [Unknown]
  - Blood cholesterol increased [Unknown]
  - Weight decreased [Unknown]
  - Very low density lipoprotein increased [Unknown]
